FAERS Safety Report 7255451-7 (Version None)
Quarter: 2011Q1

REPORT INFORMATION
  Report Type: 
  Country: None (occurrence: None)
  Receive Date: 20110129
  Receipt Date: 20100422
  Transmission Date: 20110831
  Serious: No
  Sender: FDA-Public Use
  Company Number: US-ABBOTT-10P-163-0640401-00

PATIENT
  Sex: Female
  Weight: 69.462 kg

DRUGS (3)
  1. HUMIRA [Suspect]
     Route: 058
     Dates: start: 20100301, end: 20100421
  2. HUMIRA [Suspect]
     Indication: CROHN'S DISEASE
     Route: 058
     Dates: start: 20080701, end: 20100201
  3. CANASA [Concomitant]
     Indication: CROHN'S DISEASE

REACTIONS (7)
  - NAUSEA [None]
  - INJECTION SITE PRURITUS [None]
  - EYE PAIN [None]
  - INJECTION SITE SWELLING [None]
  - ABNORMAL SENSATION IN EYE [None]
  - ABDOMINAL PAIN UPPER [None]
  - INCORRECT DOSE ADMINISTERED [None]
